FAERS Safety Report 16069452 (Version 2)
Quarter: 2019Q3

REPORT INFORMATION
  Report Type: Report from Study
  Country: US (occurrence: US)
  Receive Date: 20190313
  Receipt Date: 20190731
  Transmission Date: 20191004
  Serious: Yes (Hospitalization, Disabling, Other)
  Sender: FDA-Public Use
  Company Number: US-SA-2018SA329297

PATIENT
  Age: 62 Year
  Sex: Male

DRUGS (6)
  1. INSULIN GLARGINE [Suspect]
     Active Substance: INSULIN GLARGINE
     Dosage: 30 U, QD
     Route: 058
  2. INSULIN GLARGINE [Suspect]
     Active Substance: INSULIN GLARGINE
     Dosage: 60 U, QD
     Route: 058
  3. APIDRA [Concomitant]
     Active Substance: INSULIN GLULISINE
  4. INSULIN GLARGINE [Suspect]
     Active Substance: INSULIN GLARGINE
     Indication: TYPE 2 DIABETES MELLITUS
     Dosage: 60 U, QD
     Route: 058
  5. INSULIN GLARGINE [Suspect]
     Active Substance: INSULIN GLARGINE
     Dosage: 45 U, QD
     Route: 058
  6. CLONIDINE. [Concomitant]
     Active Substance: CLONIDINE
     Dosage: 0.3 MG, QD

REACTIONS (10)
  - Disability [Not Recovered/Not Resolved]
  - Product dose omission [Not Recovered/Not Resolved]
  - Joint injury [Not Recovered/Not Resolved]
  - Blood glucose increased [Not Recovered/Not Resolved]
  - Intentional product misuse [Unknown]
  - Malaise [Recovered/Resolved]
  - Inability to afford medication [Recovered/Resolved]
  - Intentional product use issue [Not Recovered/Not Resolved]
  - Myocardial infarction [Recovered/Resolved]
  - Blood glucose abnormal [Recovered/Resolved]
